FAERS Safety Report 25947388 (Version 1)
Quarter: 2025Q4

REPORT INFORMATION
  Report Type: Report from Study
  Country: US (occurrence: US)
  Receive Date: 20251022
  Receipt Date: 20251022
  Transmission Date: 20260117
  Serious: No
  Sender: ACADIA PHARMACEUTICALS
  Company Number: US-ACADIA PHARMACEUTICALS INC.-ACA-2025-PIM-011334

PATIENT
  Age: 78 Year
  Sex: Female
  Weight: 85.27 kg

DRUGS (2)
  1. NUPLAZID [Suspect]
     Active Substance: PIMAVANSERIN TARTRATE
     Indication: Affective disorder
     Dosage: 10 MILLIGRAM, QD (QPM)
     Route: 048
     Dates: start: 202508
  2. NUPLAZID [Suspect]
     Active Substance: PIMAVANSERIN TARTRATE
     Indication: Hallucination

REACTIONS (3)
  - Adverse drug reaction [Unknown]
  - Underdose [Unknown]
  - Product use in unapproved indication [Unknown]

NARRATIVE: CASE EVENT DATE: 20250801
